FAERS Safety Report 9777989 (Version 1)
Quarter: 2013Q4

REPORT INFORMATION
  Report Type: Spontaneous
  Country: ZA (occurrence: ZA)
  Receive Date: 20131223
  Receipt Date: 20131223
  Transmission Date: 20140711
  Serious: Yes (Death)
  Sender: FDA-Public Use
  Company Number: ZA-ASTRAZENECA-2013SE92745

PATIENT
  Sex: Male
  Weight: 47 kg

DRUGS (7)
  1. NEXIAM [Suspect]
     Indication: ULCER
     Route: 048
     Dates: start: 20131127, end: 20131130
  2. ASPEN FLUCONAZOLE [Concomitant]
  3. MYPRODOL [Concomitant]
  4. STILLEN [Concomitant]
  5. TOPZOLE [Concomitant]
  6. URBANOL [Concomitant]
  7. CLOPAMON [Concomitant]

REACTIONS (1)
  - Neoplasm malignant [Fatal]
